FAERS Safety Report 12115074 (Version 1)
Quarter: 2016Q1

REPORT INFORMATION
  Report Type: Spontaneous
  Country: DE (occurrence: DE)
  Receive Date: 20160225
  Receipt Date: 20160225
  Transmission Date: 20160526
  Serious: Yes (Other)
  Sender: FDA-Public Use
  Company Number: DE-CONCORDIA PHARMACEUTICALS INC.-CO-PL-DE-2016-065

PATIENT
  Age: 55 Year
  Sex: Female

DRUGS (4)
  1. PREDNISOLONE. [Suspect]
     Active Substance: PREDNISOLONE
     Indication: SYSTEMIC LUPUS ERYTHEMATOSUS
  2. PREDNISOLONE. [Suspect]
     Active Substance: PREDNISOLONE
  3. IMIQUIMOD. [Suspect]
     Active Substance: IMIQUIMOD
     Indication: PAPILLOMA VIRAL INFECTION
  4. HYDROXYCHLOROQUINE SULFATE. [Suspect]
     Active Substance: HYDROXYCHLOROQUINE SULFATE
     Indication: SYSTEMIC LUPUS ERYTHEMATOSUS

REACTIONS (13)
  - Squamous cell carcinoma of skin [Recovered/Resolved]
  - Candida infection [Unknown]
  - Fungal infection [Unknown]
  - Local reaction [Unknown]
  - Hyperkeratosis [Unknown]
  - Skin lesion [Unknown]
  - Skin ulcer [Unknown]
  - Erythema [Unknown]
  - Skin erosion [Unknown]
  - Papilloma viral infection [Unknown]
  - Eczema [Unknown]
  - Enterococcal infection [Unknown]
  - Neutrophil count increased [Unknown]
